FAERS Safety Report 9637698 (Version 1)
Quarter: 2013Q4

REPORT INFORMATION
  Report Type: Spontaneous
  Country: AU (occurrence: None)
  Receive Date: 20131018
  Receipt Date: 20131018
  Transmission Date: 20140711
  Serious: Yes (Other)
  Sender: FDA-Public Use
  Company Number: 2013AP008934

PATIENT
  Sex: Male

DRUGS (4)
  1. ESCITALOPRAM (ESCITALOPRAM) [Suspect]
     Indication: DEMENTIA ALZHEIMER^S TYPE
  2. QUETIAPINE (QUETIAPINE) [Suspect]
     Indication: DEMENTIA ALZHEIMER^S TYPE
  3. MIRTAZAPINE (MIRTAZAPINE) [Suspect]
  4. SODIUM VALPROATE (VALPROATE SODIUM) [Concomitant]

REACTIONS (2)
  - Partial seizures [None]
  - Hallucination, visual [None]
